FAERS Safety Report 6065361-9 (Version None)
Quarter: 2009Q1

REPORT INFORMATION
  Report Type: 
  Country: None (occurrence: None)
  Receive Date: 20090204
  Receipt Date: 20090122
  Transmission Date: 20090719
  Serious: Yes (Other)
  Sender: FDA-Public Use
  Company Number: AU-CELGENEUS-008-21880-08121102

PATIENT
  Sex: Male

DRUGS (2)
  1. REVLIMID [Suspect]
     Indication: MULTIPLE MYELOMA
     Route: 048
     Dates: start: 20080829
  2. DEXAMETHASONE [Concomitant]
     Indication: MULTIPLE MYELOMA
     Route: 065
     Dates: start: 20080808, end: 20080924

REACTIONS (2)
  - DRUG INTOLERANCE [None]
  - MOOD SWINGS [None]
